FAERS Safety Report 24203915 (Version 1)
Quarter: 2024Q3

REPORT INFORMATION
  Report Type: Spontaneous
  Country: CN (occurrence: CN)
  Receive Date: 20240813
  Receipt Date: 20240813
  Transmission Date: 20241016
  Serious: Yes (Other)
  Sender: SPECGX
  Company Number: CN-SPECGX-T202401710

PATIENT
  Age: 23 Year
  Sex: Female
  Weight: 53 kg

DRUGS (1)
  1. TYLOX [Suspect]
     Active Substance: ACETAMINOPHEN\OXYCODONE HYDROCHLORIDE
     Indication: Analgesic therapy
     Dosage: 5 MILLIGRAM, Q6H
     Route: 048
     Dates: start: 20240807, end: 20240807

REACTIONS (3)
  - Gastrooesophageal reflux disease [Recovered/Resolved]
  - Discomfort [Recovered/Resolved]
  - Nausea [Recovered/Resolved]

NARRATIVE: CASE EVENT DATE: 20240807
